FAERS Safety Report 4764550-0 (Version None)
Quarter: 2005Q3

REPORT INFORMATION
  Report Type: 
  Country: None (occurrence: None)
  Receive Date: 20050906
  Receipt Date: 20050825
  Transmission Date: 20060218
  Serious: Yes (Other)
  Sender: FDA-Public Use
  Company Number: 2005121052

PATIENT
  Sex: Female
  Weight: 79.3795 kg

DRUGS (5)
  1. NICOTROL [Suspect]
     Indication: SMOKING CESSATION THERAPY
     Dosage: 1 CARTRIDGE DAILY THEN ONE FOR 3-4 DAYS, INHALATION
     Route: 055
     Dates: start: 20030101, end: 20030101
  2. CELECOXIB (CELECOXIB) [Concomitant]
  3. DICLOFENAC SODIUM [Concomitant]
  4. CITALOPRAM HYDROBROMIDE [Concomitant]
  5. TIOTIXENE (TIOTIXENE) [Concomitant]

REACTIONS (3)
  - DEPRESSION [None]
  - DRUG DEPENDENCE [None]
  - DRUG INEFFECTIVE [None]
